FAERS Safety Report 26118059 (Version 1)
Quarter: 2025Q4

REPORT INFORMATION
  Report Type: Spontaneous
  Country: JP (occurrence: JP)
  Receive Date: 20251203
  Receipt Date: 20251203
  Transmission Date: 20260117
  Serious: Yes (Hospitalization, Other)
  Sender: BRISTOL-MYERS SQUIBB COMPANY
  Company Number: JP-BRISTOL-MYERS SQUIBB COMPANY-2025-162752

PATIENT
  Age: 92 Year
  Sex: Male

DRUGS (2)
  1. ELIQUIS [Suspect]
     Active Substance: APIXABAN
     Indication: Peripheral vein thrombosis
     Dosage: 5 MG (4 TABLETS) DIVIDED INTO 2 DOSES DAILY
  2. ELIQUIS [Suspect]
     Active Substance: APIXABAN
     Dosage: 5 MG (2 TABLETS) DIVIDED INTO 2 DOSES DAILY

REACTIONS (1)
  - Cerebral haemorrhage [Unknown]
